FAERS Safety Report 5861614-5 (Version None)
Quarter: 2008Q3

REPORT INFORMATION
  Report Type: 
  Country: None (occurrence: None)
  Receive Date: 20080827
  Receipt Date: 20080602
  Transmission Date: 20090109
  Serious: No
  Sender: FDA-Public Use
  Company Number: US-ABBOTT-08P-163-0454396-00

PATIENT
  Sex: Female

DRUGS (3)
  1. NIASPAN [Suspect]
     Indication: DRUG USE FOR UNKNOWN INDICATION
     Dosage: 2 TABLETS AT BEDTIME
     Route: 048
     Dates: start: 20080301
  2. NIASPAN [Suspect]
     Dosage: WHITE
     Route: 048
     Dates: start: 20070808, end: 20080301
  3. NIASPAN [Suspect]
     Indication: DRUG USE FOR UNKNOWN INDICATION
     Dates: start: 20070808, end: 20080301

REACTIONS (3)
  - PRURITUS [None]
  - RASH [None]
  - URTICARIA [None]
